FAERS Safety Report 25378472 (Version 2)
Quarter: 2025Q2

REPORT INFORMATION
  Report Type: Spontaneous
  Country: AT (occurrence: AT)
  Receive Date: 20250530
  Receipt Date: 20250602
  Transmission Date: 20250717
  Serious: Yes (Death, Hospitalization)
  Sender: ROCHE
  Company Number: AT-ROCHE-10000295885

PATIENT
  Age: 70 Year
  Sex: Male

DRUGS (1)
  1. ATEZOLIZUMAB [Suspect]
     Active Substance: ATEZOLIZUMAB
     Indication: Non-small cell lung cancer
     Route: 065
     Dates: start: 20230614, end: 20240725

REACTIONS (2)
  - Respiratory failure [Fatal]
  - Cardiac failure [Unknown]

NARRATIVE: CASE EVENT DATE: 20240701
